FAERS Safety Report 21053639 (Version 2)
Quarter: 2022Q3

REPORT INFORMATION
  Report Type: Report from Study
  Country: CA (occurrence: CA)
  Receive Date: 20220707
  Receipt Date: 20220920
  Transmission Date: 20221027
  Serious: Yes (Death, Hospitalization, Other)
  Sender: FDA-Public Use
  Company Number: CA-BRISTOL-MYERS SQUIBB COMPANY-2022-060890

PATIENT
  Age: 68 Year
  Sex: Male

DRUGS (3)
  1. OPDIVO [Suspect]
     Active Substance: NIVOLUMAB
     Indication: Oesophageal carcinoma
     Route: 042
     Dates: start: 20220610
  2. FLUOROURACIL [Suspect]
     Active Substance: FLUOROURACIL
     Indication: Product used for unknown indication
     Dosage: 3 X 93MG
     Route: 065
  3. HYDROMORPHONE HYDROCHLORIDE [Concomitant]
     Active Substance: HYDROMORPHONE HYDROCHLORIDE
     Indication: Abdominal tenderness

REACTIONS (23)
  - Hypoxia [Fatal]
  - Skin disorder [Unknown]
  - Dry skin [Unknown]
  - Temperature intolerance [Unknown]
  - Gait disturbance [Unknown]
  - Asthenia [Unknown]
  - Tremor [Unknown]
  - Muscular weakness [Unknown]
  - Bradykinesia [Unknown]
  - Mucous stools [Unknown]
  - Diarrhoea [Unknown]
  - Constipation [Unknown]
  - Chromaturia [Unknown]
  - Memory impairment [Unknown]
  - Confusional state [Unknown]
  - Dizziness [Unknown]
  - Dizziness postural [Unknown]
  - Malaise [Unknown]
  - Cold sweat [Unknown]
  - Decreased appetite [Unknown]
  - Somnolence [Unknown]
  - Weight decreased [Unknown]
  - Hypoacusis [Unknown]

NARRATIVE: CASE EVENT DATE: 20220614
